FAERS Safety Report 5469553-9 (Version None)
Quarter: 2007Q3

REPORT INFORMATION
  Report Type: 
  Country: None (occurrence: None)
  Receive Date: 20070927
  Receipt Date: 20070924
  Transmission Date: 20080115
  Serious: Yes (Other)
  Sender: FDA-Public Use
  Company Number: D0054651A

PATIENT
  Age: 39 Year
  Sex: Female

DRUGS (1)
  1. SEROXAT [Suspect]
     Route: 048
     Dates: start: 20020101

REACTIONS (1)
  - ELECTROCARDIOGRAM QT SHORTENED [None]
